FAERS Safety Report 9484166 (Version 2)
Quarter: 2013Q3

REPORT INFORMATION
  Report Type: Spontaneous
  Country: CA (occurrence: CA)
  Receive Date: 20130828
  Receipt Date: 20130828
  Transmission Date: 20140515
  Serious: Yes (Hospitalization)
  Sender: FDA-Public Use
  Company Number: CA-AMGEN-KDL279708

PATIENT
  Age: 43 Year
  Sex: Female
  Weight: 77.2 kg

DRUGS (3)
  1. ENBREL [Suspect]
     Indication: RHEUMATOID ARTHRITIS
     Dosage: UNK UNK, QWK
     Route: 065
     Dates: start: 20080314
  2. LEFLUNOMIDE [Concomitant]
     Dosage: UNK UNK, UNK
  3. SULFASALAZINE [Concomitant]
     Dosage: UNK UNK, UNK

REACTIONS (4)
  - Mitral valve replacement [Recovered/Resolved]
  - Cardiac failure congestive [Recovered/Resolved]
  - Rheumatoid arthritis [Unknown]
  - Injection site pain [Unknown]
